FAERS Safety Report 19590363 (Version 1)
Quarter: 2021Q3

REPORT INFORMATION
  Report Type: Spontaneous
  Country: US (occurrence: US)
  Receive Date: 20210721
  Receipt Date: 20210721
  Transmission Date: 20211014
  Serious: No
  Sender: FDA-Public Use
  Company Number: US-GALDERMA-US2021014008

PATIENT

DRUGS (1)
  1. DIFFERIN GEL [Suspect]
     Active Substance: ADAPALENE
     Indication: ACNE
     Dosage: 1 DOSAGE FORM, QD, (AT NIGHT, SOMETIMES DURING DAY TIME)
     Route: 061
     Dates: start: 202104

REACTIONS (2)
  - Acne [Not Recovered/Not Resolved]
  - Sensitive skin [Unknown]

NARRATIVE: CASE EVENT DATE: 2021
